FAERS Safety Report 5693568-9 (Version None)
Quarter: 2008Q2

REPORT INFORMATION
  Report Type: 
  Country: None (occurrence: None)
  Receive Date: 20080401
  Receipt Date: 20080401
  Transmission Date: 20081010
  Serious: Yes (Hospitalization)
  Sender: FDA-Public Use
  Company Number: None

PATIENT
  Age: 74 Year
  Sex: Male
  Weight: 95.25 kg

DRUGS (3)
  1. WARFARIN SODIUM [Suspect]
     Indication: DEEP VEIN THROMBOSIS
     Dosage: 7.5MG OTHER PO
     Route: 048
     Dates: start: 20080107, end: 20080301
  2. WARFARIN SODIUM [Suspect]
     Indication: PULMONARY EMBOLISM
     Dosage: 7.5MG OTHER PO
     Route: 048
     Dates: start: 20080107, end: 20080301
  3. WARFARIN SODIUM [Suspect]
     Dosage: 5MG OTHER PO
     Route: 048
     Dates: start: 20080107, end: 20080301

REACTIONS (3)
  - DRUG TOXICITY [None]
  - INTERNATIONAL NORMALISED RATIO ABNORMAL [None]
  - LOWER GASTROINTESTINAL HAEMORRHAGE [None]
